FAERS Safety Report 25942872 (Version 2)
Quarter: 2025Q4

REPORT INFORMATION
  Report Type: Other
  Country: EU (occurrence: EU)
  Receive Date: 20251021
  Receipt Date: 20251021
  Transmission Date: 20260117
  Serious: Yes (Hospitalization)
  Sender: Atnahs Healthcare
  Company Number: None

PATIENT

DRUGS (9)
  1. VALIUM [Suspect]
     Active Substance: DIAZEPAM
     Indication: Prophylaxis against alcoholic withdrawal syndrome
     Dosage: 3 DOSAGE FORM, DAILY
     Route: 048
  2. CANNABIS SATIVA SUBSP. INDICA TOP [Suspect]
     Active Substance: CANNABIS SATIVA SUBSP. INDICA TOP
     Indication: Product used for unknown indication
     Dosage: 1 JOINT, THREE TIMES A MONTH
     Dates: start: 2008
  3. COCAINE [Suspect]
     Active Substance: COCAINE
     Indication: Product used for unknown indication
     Dosage: EVERY WEEKEND, DOSAGE UNKNOWN
     Dates: start: 2013
  4. MIDOMAFETAMINE [Suspect]
     Active Substance: MIDOMAFETAMINE
     Indication: Product used for unknown indication
     Dosage: UNK
     Route: 049
     Dates: start: 2013
  5. MIDOMAFETAMINE [Suspect]
     Active Substance: MIDOMAFETAMINE
     Indication: Product used for unknown indication
     Dosage: UNK
     Route: 060
     Dates: start: 2013
  6. KETAMINE [Suspect]
     Active Substance: KETAMINE
     Indication: Intentional product misuse
     Dosage: UNK
     Dates: start: 2013
  7. ACUPAN [Suspect]
     Active Substance: NEFOPAM HYDROCHLORIDE
     Indication: Ligament disorder
     Dosage: 5 TO 6 TABLETS
  8. ACUPAN [Suspect]
     Active Substance: NEFOPAM HYDROCHLORIDE
     Indication: Intentional product misuse
  9. ALCOHOL (ALCOHOL) [Suspect]
     Active Substance: ALCOHOL
     Indication: Product used for unknown indication
     Dosage: 24 UNITS PER DAY
     Route: 065
     Dates: start: 2008

REACTIONS (4)
  - Toxicity to various agents [Recovered/Resolved]
  - Drug abuse [Not Recovered/Not Resolved]
  - Intentional product misuse [Not Recovered/Not Resolved]
  - Suicidal ideation [Not Recovered/Not Resolved]

NARRATIVE: CASE EVENT DATE: 20080101
